FAERS Safety Report 18767802 (Version 1)
Quarter: 2021Q1

REPORT INFORMATION
  Report Type: Spontaneous
  Country: US (occurrence: US)
  Receive Date: 20210120
  Receipt Date: 20210120
  Transmission Date: 20210419
  Serious: Yes (Hospitalization)
  Sender: FDA-Public Use
  Company Number: None

PATIENT
  Age: 74 Year
  Sex: Male
  Weight: 95 kg

DRUGS (1)
  1. APIXABAN (APIXABAN 5MG TAB) [Suspect]
     Active Substance: APIXABAN
     Indication: ATRIAL FIBRILLATION
     Route: 048
     Dates: start: 20200821, end: 20201025

REACTIONS (6)
  - Haematochezia [None]
  - Rectal haemorrhage [None]
  - Haemoglobin decreased [None]
  - Large intestine polyp [None]
  - Unresponsive to stimuli [None]
  - Diverticulum intestinal [None]

NARRATIVE: CASE EVENT DATE: 20201025
